FAERS Safety Report 19023645 (Version 5)
Quarter: 2021Q4

REPORT INFORMATION
  Report Type: Report from Study
  Country: US (occurrence: US)
  Receive Date: 20210318
  Receipt Date: 20211026
  Transmission Date: 20220303
  Serious: Yes (Death, Hospitalization)
  Sender: FDA-Public Use
  Company Number: US-ROCHE-2791838

PATIENT
  Age: 53 Year
  Sex: Male
  Weight: 75.28 kg

DRUGS (39)
  1. COBIMETINIB [Suspect]
     Active Substance: COBIMETINIB
     Indication: Non-small cell lung cancer
     Dosage: BIWEEKLY (DAY 1 AND DAY 2)?ON 03/MAR/2021, HE RECEIVED LAST DOSE OF COBIMETINIB PRIOR TO ONSET OF SE
     Route: 048
     Dates: start: 20210216, end: 20210309
  2. MEBENDAZOLE [Concomitant]
     Active Substance: MEBENDAZOLE
  3. NEBIVOLOL [Concomitant]
     Active Substance: NEBIVOLOL
  4. MELATONIN [Concomitant]
     Active Substance: MELATONIN
  5. METAMUCIL PLUS CALCIUM [Concomitant]
  6. ASPIRIN [Concomitant]
     Active Substance: ASPIRIN
  7. ESCITALOPRAM [Concomitant]
     Active Substance: ESCITALOPRAM OXALATE
  8. TRAZODONE [Concomitant]
     Active Substance: TRAZODONE HYDROCHLORIDE
  9. AMBIEN CR [Concomitant]
     Active Substance: ZOLPIDEM TARTRATE
  10. PROCHLORPERAZINE [Concomitant]
     Active Substance: PROCHLORPERAZINE
  11. CANNABIDIOL [Concomitant]
     Active Substance: CANNABIDIOL
  12. DEXAMETHASONE [Concomitant]
     Active Substance: DEXAMETHASONE
  13. LIDOCAINE [Concomitant]
     Active Substance: LIDOCAINE
  14. METHADONE [Concomitant]
     Active Substance: METHADONE HYDROCHLORIDE
  15. CURCUMIN [Concomitant]
     Active Substance: CURCUMIN
  16. FAMOTIDINE [Concomitant]
     Active Substance: FAMOTIDINE
  17. SODIUM BICARBONATE [Concomitant]
     Active Substance: SODIUM BICARBONATE
  18. MORPHINE [Concomitant]
     Active Substance: MORPHINE
  19. NARCAN [Concomitant]
     Active Substance: NALOXONE HYDROCHLORIDE
  20. ACETAMINOPHEN [Concomitant]
     Active Substance: ACETAMINOPHEN
  21. GALCANEZUMAB [Concomitant]
     Active Substance: GALCANEZUMAB
  22. GLUCOPHAGE [Concomitant]
     Active Substance: METFORMIN HYDROCHLORIDE
  23. ONDANSETRON [Concomitant]
     Active Substance: ONDANSETRON
  24. IBUPROFEN [Concomitant]
     Active Substance: IBUPROFEN
  25. ZOMIG [Concomitant]
     Active Substance: ZOLMITRIPTAN
  26. ZOLPIDEM [Concomitant]
     Active Substance: ZOLPIDEM TARTRATE
  27. AMLODIPINE [Concomitant]
     Active Substance: AMLODIPINE BESYLATE
  28. ATORVASTATIN [Concomitant]
     Active Substance: ATORVASTATIN
  29. GABAPENTIN [Concomitant]
     Active Substance: GABAPENTIN
  30. ALPRAZOLAM [Concomitant]
     Active Substance: ALPRAZOLAM
  31. DOCUSATE SODIUM\SENNOSIDE A\SENNOSIDE B [Concomitant]
     Active Substance: DOCUSATE SODIUM\SENNOSIDE A\SENNOSIDE B
  32. TAMSULOSIN [Concomitant]
     Active Substance: TAMSULOSIN
  33. NALOXONE [Concomitant]
     Active Substance: NALOXONE
  34. ZEBETA [Concomitant]
     Active Substance: BISOPROLOL FUMARATE
  35. FAMOTIDINE [Concomitant]
     Active Substance: FAMOTIDINE
  36. KEYTRUDA [Concomitant]
     Active Substance: PEMBROLIZUMAB
  37. TAXOTERE [Concomitant]
     Active Substance: DOCETAXEL
  38. OXYGEN [Concomitant]
     Active Substance: OXYGEN
  39. ALBUTEROL\IPRATROPIUM [Concomitant]
     Active Substance: ALBUTEROL\IPRATROPIUM

REACTIONS (1)
  - Pneumonitis [Fatal]

NARRATIVE: CASE EVENT DATE: 20210307
